FAERS Safety Report 6038212-6 (Version None)
Quarter: 2009Q1

REPORT INFORMATION
  Report Type: 
  Country: None (occurrence: None)
  Receive Date: 20090115
  Receipt Date: 20090105
  Transmission Date: 20090719
  Serious: Yes (Death, Other)
  Sender: FDA-Public Use
  Company Number: JP-PFIZER INC-2008097254

PATIENT

DRUGS (5)
  1. PRODIF [Suspect]
     Indication: SEPSIS
     Dosage: 252.3 MG, 1X/DAY
     Route: 042
     Dates: start: 20080708, end: 20080719
  2. PRODIF [Suspect]
     Dosage: 504.5 MG, 1X/DAY
     Route: 042
     Dates: start: 20080811, end: 20080811
  3. FINIBAX [Suspect]
     Indication: SEPSIS
     Dosage: 0.125 G, 2X/DAY
     Route: 042
     Dates: start: 20080702, end: 20080722
  4. FINIBAX [Suspect]
     Dosage: 0.25 G, 1X/DAY
     Route: 042
     Dates: start: 20080809, end: 20080819
  5. ZYVOX [Suspect]
     Indication: SEPSIS
     Dosage: 300 MG, 2X/DAY
     Route: 042
     Dates: start: 20080722, end: 20080726

REACTIONS (3)
  - DRUG ERUPTION [None]
  - SEPSIS [None]
  - TOXIC EPIDERMAL NECROLYSIS [None]
